FAERS Safety Report 11800828 (Version 1)
Quarter: 2015Q4

REPORT INFORMATION
  Report Type: Spontaneous
  Country: US (occurrence: US)
  Receive Date: 20151204
  Receipt Date: 20151204
  Transmission Date: 20160305
  Serious: No
  Sender: FDA-Public Use
  Company Number: US-THE MEDICINES COMPANY-US-MDCO-15-00406

PATIENT
  Age: 55 Year
  Sex: Female

DRUGS (3)
  1. ORBACTIV [Suspect]
     Active Substance: ORITAVANCIN
     Dosage: NOT REPORTED
     Dates: start: 20150814, end: 20150814
  2. ORBACTIV [Suspect]
     Active Substance: ORITAVANCIN
     Indication: OSTEOMYELITIS
     Dosage: NOT REPORTED
     Dates: start: 20150725, end: 20150725
  3. ORBACTIV [Suspect]
     Active Substance: ORITAVANCIN
     Dosage: NOT REPORTED
     Dates: start: 20150804, end: 20150804

REACTIONS (2)
  - Off label use [Recovered/Resolved]
  - No adverse event [Recovered/Resolved]

NARRATIVE: CASE EVENT DATE: 20150725
